FAERS Safety Report 5047636-5 (Version None)
Quarter: 2006Q3

REPORT INFORMATION
  Report Type: 
  Country: None (occurrence: None)
  Receive Date: 20060705
  Receipt Date: 20060621
  Transmission Date: 20061208
  Serious: Yes (Hospitalization)
  Sender: FDA-Public Use
  Company Number: US017845

PATIENT
  Age: 46 Year
  Sex: Male
  Weight: 88.905 kg

DRUGS (2)
  1. ACTIQ [Suspect]
     Indication: PAIN
     Dosage: 800 MG PRN BUCCAL
     Route: 002
     Dates: start: 20020601, end: 20060301
  2. OXYCONTIN [Concomitant]

REACTIONS (7)
  - AORTIC VALVE DISEASE [None]
  - CHEST PAIN [None]
  - DENTAL CARIES [None]
  - EATING DISORDER [None]
  - MASTICATION DISORDER [None]
  - TOOTH INJURY [None]
  - TOOTHACHE [None]
